FAERS Safety Report 5100667-9 (Version None)
Quarter: 2006Q3

REPORT INFORMATION
  Report Type: 
  Country: None (occurrence: None)
  Receive Date: 20060906
  Receipt Date: 20060826
  Transmission Date: 20061208
  Serious: Yes (Other)
  Sender: FDA-Public Use
  Company Number: 2006103483

PATIENT
  Age: 62 Year
  Sex: Male
  Weight: 112.4921 kg

DRUGS (2)
  1. BENADRYL ALLERGY + SINUS HEADACHE W/PE (DIPHENHYDRAMINE, PHENYLEPHRINE [Suspect]
     Indication: ARTHROPOD BITE
     Dosage: 2 TABLETS ONCE, ORAL
     Route: 048
     Dates: start: 20060824, end: 20060824
  2. LEVOFLOXACIN [Concomitant]

REACTIONS (4)
  - ASTHENIA [None]
  - FEELING ABNORMAL [None]
  - GAIT DISTURBANCE [None]
  - TREMOR [None]
